FAERS Safety Report 23474647 (Version 1)
Quarter: 2024Q1

REPORT INFORMATION
  Report Type: Report from Study
  Country: US (occurrence: US)
  Receive Date: 20240204
  Receipt Date: 20240204
  Transmission Date: 20240410
  Serious: Yes (Other)
  Sender: FDA-Public Use
  Company Number: US-EXELIXIS-CABO-23063475

PATIENT
  Sex: Male

DRUGS (20)
  1. CABOMETYX [Suspect]
     Active Substance: CABOZANTINIB S-MALATE
     Indication: Adrenocortical carcinoma
     Dosage: 40 MG, QD
     Dates: start: 20230413
  2. XANAX [Concomitant]
     Active Substance: ALPRAZOLAM
  3. KCL [Concomitant]
     Active Substance: POTASSIUM CHLORIDE
  4. ALBUTEROL [Concomitant]
     Active Substance: ALBUTEROL
  5. NIFEDIPINE [Concomitant]
     Active Substance: NIFEDIPINE
  6. PROSCAR [Concomitant]
     Active Substance: FINASTERIDE
  7. HYDROCODONE BITARTRATE AND ACETAMINOPHEN [Concomitant]
     Active Substance: ACETAMINOPHEN\HYDROCODONE BITARTRATE
  8. METOPROLOL [Concomitant]
     Active Substance: METOPROLOL
  9. XYZAL [Concomitant]
     Active Substance: LEVOCETIRIZINE DIHYDROCHLORIDE
  10. LASIX [Concomitant]
     Active Substance: FUROSEMIDE
  11. FENOFIBRATE [Concomitant]
     Active Substance: FENOFIBRATE
  12. FOLIC ACID [Concomitant]
     Active Substance: FOLIC ACID
  13. TAMSULOSIN [Concomitant]
     Active Substance: TAMSULOSIN
  14. PROTONIX [Concomitant]
     Active Substance: PANTOPRAZOLE SODIUM
  15. ALLOPURINOL [Concomitant]
     Active Substance: ALLOPURINOL
  16. VITAMINS [Concomitant]
     Active Substance: VITAMINS
  17. FERROUS SULFATE [Concomitant]
     Active Substance: FERROUS SULFATE
  18. CLARITIN [Concomitant]
     Active Substance: LORATADINE
  19. PREDNISONE [Concomitant]
     Active Substance: PREDNISONE
  20. CORTISONE [Concomitant]
     Active Substance: CORTISONE

REACTIONS (5)
  - Malignant neoplasm progression [Not Recovered/Not Resolved]
  - Blister [Recovering/Resolving]
  - Blood pressure fluctuation [Not Recovered/Not Resolved]
  - Diarrhoea [Not Recovered/Not Resolved]
  - Off label use [Unknown]
